FAERS Safety Report 5213738-3 (Version None)
Quarter: 2007Q1

REPORT INFORMATION
  Report Type: 
  Country: None (occurrence: None)
  Receive Date: 20070119
  Receipt Date: 20070108
  Transmission Date: 20070707
  Serious: Yes (Hospitalization, Disabling)
  Sender: FDA-Public Use
  Company Number: US-PFIZER INC-2007002553

PATIENT
  Sex: Female
  Weight: 73.9 kg

DRUGS (1)
  1. BEXTRA [Suspect]
     Indication: ARTHRITIS
     Dates: start: 20020501, end: 20020630

REACTIONS (4)
  - ANXIETY [None]
  - DEPRESSION [None]
  - QUADRIPLEGIA [None]
  - SPINAL CORD INJURY [None]
